FAERS Safety Report 7318321-1 (Version None)
Quarter: 2011Q1

REPORT INFORMATION
  Report Type: 
  Country: None (occurrence: None)
  Receive Date: 20110228
  Receipt Date: 20110218
  Transmission Date: 20110831
  Serious: No
  Sender: FDA-Public Use
  Company Number: US-BIOGENIDEC-2011BI006699

PATIENT
  Sex: Female

DRUGS (2)
  1. AVONEX [Suspect]
     Indication: MULTIPLE SCLEROSIS
     Route: 030
     Dates: start: 20100301
  2. AVONEX [Suspect]
     Route: 030
     Dates: start: 20061013, end: 20090202

REACTIONS (11)
  - INJECTION SITE PAIN [None]
  - MULTIPLE SCLEROSIS RELAPSE [None]
  - FATIGUE [None]
  - NAUSEA [None]
  - HEADACHE [None]
  - MULTIPLE SCLEROSIS [None]
  - GENERAL SYMPTOM [None]
  - INFLUENZA LIKE ILLNESS [None]
  - MUSCLE SPASMS [None]
  - BALANCE DISORDER [None]
  - INJECTION SITE HAEMATOMA [None]
